FAERS Safety Report 14269381 (Version 8)
Quarter: 2019Q1

REPORT INFORMATION
  Report Type: Spontaneous
  Country: FI (occurrence: FI)
  Receive Date: 20171211
  Receipt Date: 20190129
  Transmission Date: 20190417
  Serious: Yes (Hospitalization)
  Sender: FDA-Public Use
  Company Number: FI-PFIZER INC-2017521541

PATIENT
  Age: 88 Year
  Sex: Female

DRUGS (22)
  1. BISOPROLOL ORION [Concomitant]
     Active Substance: BISOPROLOL
     Dosage: UNK
     Route: 048
     Dates: start: 2010
  2. CEFUROXIME ORION PHARMA [Suspect]
     Active Substance: CEFUROXIME
     Indication: PNEUMONIA
     Dosage: 4.5 G, DAILY
     Route: 042
     Dates: start: 20171021, end: 20171025
  3. MADOPAR [Concomitant]
     Active Substance: BENSERAZIDE HYDROCHLORIDE\LEVODOPA
     Dosage: UNK
     Route: 048
     Dates: start: 2015
  4. MUCOMYST [ACETYLCYSTEINE] [Concomitant]
     Dosage: UNK
     Route: 048
     Dates: start: 201708
  5. FUROSEMIDE FRESENIUS KABI [Concomitant]
     Dosage: UNK
     Route: 042
     Dates: start: 20171106
  6. LYRICA [Concomitant]
     Active Substance: PREGABALIN
     Dosage: UNK
     Route: 048
     Dates: start: 20170830
  7. IPRAXA [Concomitant]
     Dosage: UNK
     Route: 055
     Dates: start: 20171025
  8. PIPERACILLIN/TAZOBACTAM [Suspect]
     Active Substance: PIPERACILLIN SODIUM\TAZOBACTAM SODIUM
     Indication: PNEUMONIA
     Dosage: 2 DF, DAILY
     Route: 042
     Dates: start: 20171102, end: 20171110
  9. SINGULAIR [Concomitant]
     Active Substance: MONTELUKAST SODIUM
     Dosage: UNK
     Route: 048
     Dates: start: 2008
  10. PRIMASPAN [Concomitant]
     Active Substance: ASPIRIN
     Dosage: UNK
     Route: 048
     Dates: start: 2010
  11. FLAGYL [Concomitant]
     Active Substance: METRONIDAZOLE\METRONIDAZOLE HYDROCHLORIDE
     Dosage: UNK
     Route: 048
     Dates: start: 20171110
  12. INNOHEP [Concomitant]
     Active Substance: TINZAPARIN SODIUM
     Dosage: UNK
     Route: 058
     Dates: start: 20171025
  13. HYDREA [Concomitant]
     Active Substance: HYDROXYUREA
     Dosage: UNK
     Route: 065
     Dates: start: 201709, end: 20171103
  14. PANADOL FORTE [PARACETAMOL] [Concomitant]
     Dosage: UNK
     Route: 048
     Dates: start: 2010
  15. AMOXIN COMP [AMOXICILLIN TRIHYDRATE;CLAVULANATE POTASSIUM] [Suspect]
     Active Substance: AMOXICILLIN\CLAVULANATE POTASSIUM
     Indication: PNEUMONIA
     Dosage: UNK
     Route: 048
     Dates: start: 20171025, end: 20171031
  16. CALCICHEW D3 [Concomitant]
     Active Substance: CALCIUM\CHOLECALCIFEROL
     Dosage: UNK
     Route: 048
     Dates: start: 2010
  17. PROLIA [Concomitant]
     Active Substance: DENOSUMAB
     Dosage: UNK
     Route: 058
     Dates: start: 201703
  18. BETOLVEX [CYANOCOBALAMIN] [Concomitant]
     Dosage: UNK
     Route: 048
     Dates: start: 2014
  19. SERETIDE [Concomitant]
     Active Substance: FLUTICASONE PROPIONATE\SALMETEROL XINAFOATE
     Dosage: UNK
     Route: 055
     Dates: start: 2014
  20. OMEPRAZOL ACTAVIS [Concomitant]
     Active Substance: OMEPRAZOLE
     Dosage: UNK
     Route: 048
     Dates: start: 2016
  21. PREDNISOLON [PREDNISOLONE] [Concomitant]
     Active Substance: PREDNISOLONE
     Dosage: UNK
     Route: 048
     Dates: start: 20171108
  22. DYGRATYL [Concomitant]
     Dosage: UNK
     Route: 048
     Dates: start: 201706

REACTIONS (3)
  - Oliguria [Not Recovered/Not Resolved]
  - Blood creatinine increased [Not Recovered/Not Resolved]
  - Fluid retention [Not Recovered/Not Resolved]

NARRATIVE: CASE EVENT DATE: 20171110
